FAERS Safety Report 6526949-1 (Version None)
Quarter: 2010Q1

REPORT INFORMATION
  Report Type: 
  Country: None (occurrence: None)
  Receive Date: 20100104
  Receipt Date: 20100104
  Transmission Date: 20100710
  Serious: Yes (Other)
  Sender: FDA-Public Use
  Company Number: None

PATIENT
  Sex: Male
  Weight: 102.5129 kg

DRUGS (1)
  1. FINASTERIDE [Suspect]
     Indication: PROSTATOMEGALY
     Dosage: 5MG TAB 1 TAB ORAL
     Route: 048
     Dates: start: 20090909

REACTIONS (2)
  - MUSCLE TIGHTNESS [None]
  - PRODUCT SUBSTITUTION ISSUE [None]
